FAERS Safety Report 14991191 (Version 2)
Quarter: 2018Q2

REPORT INFORMATION
  Report Type: Spontaneous
  Country: BR (occurrence: BR)
  Receive Date: 20180608
  Receipt Date: 20180612
  Transmission Date: 20180711
  Serious: Yes (Death, Hospitalization, Other)
  Sender: FDA-Public Use
  Company Number: BR-ALEXION PHARMACEUTICALS INC.-A201807281

PATIENT
  Age: 31 Year
  Sex: Female

DRUGS (2)
  1. SOLIRIS [Suspect]
     Active Substance: ECULIZUMAB
     Indication: ATYPICAL HAEMOLYTIC URAEMIC SYNDROME
     Dosage: 900 MG, EVERY 7 DAYS
     Route: 042
     Dates: start: 20161110, end: 20161201
  2. SOLIRIS [Suspect]
     Active Substance: ECULIZUMAB
     Dosage: 1200 MG, EVERY 14 DAYS
     Route: 042
     Dates: start: 20161208

REACTIONS (9)
  - Inappropriate schedule of drug administration [Unknown]
  - Hospitalisation [Fatal]
  - Systemic lupus erythematosus [Unknown]
  - Fungal endocarditis [Unknown]
  - Alopecia [Unknown]
  - Asthenia [Unknown]
  - Pyrexia [Unknown]
  - Weight decreased [Unknown]
  - Arthralgia [Unknown]

NARRATIVE: CASE EVENT DATE: 2018
